FAERS Safety Report 9285243 (Version 1)
Quarter: 2013Q2

REPORT INFORMATION
  Report Type: Spontaneous
  Country: FR (occurrence: FR)
  Receive Date: 20130513
  Receipt Date: 20130513
  Transmission Date: 20140414
  Serious: Yes (Hospitalization)
  Sender: FDA-Public Use
  Company Number: FR-JNJFOC-20130502461

PATIENT
  Age: 66 Year
  Sex: Male

DRUGS (7)
  1. REMICADE [Suspect]
     Indication: RHEUMATOID ARTHRITIS
     Dosage: 21ST INFUSION
     Route: 042
     Dates: end: 20120419
  2. REMICADE [Suspect]
     Indication: RHEUMATOID ARTHRITIS
     Dosage: THIRD INFUSION SINCE RE-INITIATION
     Route: 042
     Dates: start: 20130115
  3. REMICADE [Suspect]
     Indication: RHEUMATOID ARTHRITIS
     Dosage: THIRD INFUSION SINCE RE-INITIATION
     Route: 042
     Dates: start: 20130315, end: 20130315
  4. HUMALOG [Concomitant]
     Route: 065
  5. LEVEMIR [Concomitant]
     Route: 065
  6. DIAMICRON [Concomitant]
     Route: 065
  7. ARAVA [Concomitant]
     Route: 065

REACTIONS (2)
  - Hypovolaemic shock [Recovered/Resolved]
  - Infection [Unknown]
